FAERS Safety Report 7394557-9 (Version None)
Quarter: 2011Q2

REPORT INFORMATION
  Report Type: 
  Country: None (occurrence: None)
  Receive Date: 20110405
  Receipt Date: 20110402
  Transmission Date: 20111010
  Serious: Yes (Death, Hospitalization)
  Sender: FDA-Public Use
  Company Number: PHHY2011CN26860

PATIENT
  Age: 43 Year
  Sex: Male

DRUGS (2)
  1. SANDIMMUNE [Suspect]
     Indication: RENAL TRANSPLANT
     Dosage: 25 MG, UNK
     Route: 048
     Dates: start: 20060811, end: 20110101
  2. CELLCEPT [Suspect]
     Dosage: 0.75 MG, TWICE A DAY

REACTIONS (1)
  - RENAL FAILURE [None]
